FAERS Safety Report 17508051 (Version 3)
Quarter: 2020Q2

REPORT INFORMATION
  Report Type: Spontaneous
  Country: US (occurrence: US)
  Receive Date: 20200305
  Receipt Date: 20200616
  Transmission Date: 20200713
  Serious: Yes (Hospitalization, Other)
  Sender: FDA-Public Use
  Company Number: US-BEH-2020113894

PATIENT
  Sex: Female

DRUGS (2)
  1. HAEGARDA [Suspect]
     Active Substance: HUMAN C1-ESTERASE INHIBITOR
     Indication: PROPHYLAXIS
     Dosage: 4000 INTERNATIONAL UNIT, BIW (EVERY 3-4 DAYS)
     Route: 065
     Dates: start: 20180501
  2. HAEGARDA [Suspect]
     Active Substance: HUMAN C1-ESTERASE INHIBITOR
     Indication: HEREDITARY ANGIOEDEMA
     Dosage: 4000 INTERNATIONAL UNIT, BIW (EVERY 3-4 DAYS)
     Route: 065
     Dates: start: 20180430

REACTIONS (5)
  - Inappropriate schedule of product administration [Unknown]
  - Gallbladder disorder [Unknown]
  - Hereditary angioedema [Recovered/Resolved]
  - Product dose omission [Unknown]
  - No adverse event [Unknown]

NARRATIVE: CASE EVENT DATE: 2020
